FAERS Safety Report 12684345 (Version 2)
Quarter: 2016Q3

REPORT INFORMATION
  Report Type: Report from Study
  Country: AR (occurrence: AR)
  Receive Date: 20160825
  Receipt Date: 20160906
  Transmission Date: 20161109
  Serious: Yes (Hospitalization, Other)
  Sender: FDA-Public Use
  Company Number: PHHY2015AR103816

PATIENT
  Age: 62 Year
  Sex: Male

DRUGS (1)
  1. EXJADE [Suspect]
     Active Substance: DEFERASIROX
     Indication: HAEMOCHROMATOSIS
     Dosage: 500 MG, QD
     Route: 065
     Dates: start: 201407, end: 201512

REACTIONS (7)
  - Renal disorder [Recovered/Resolved]
  - Serum ferritin increased [Not Recovered/Not Resolved]
  - Influenza [Recovered/Resolved]
  - Escherichia urinary tract infection [Recovering/Resolving]
  - Procedural complication [Recovered/Resolved]
  - Escherichia urinary tract infection [Recovered/Resolved]
  - Decreased immune responsiveness [Recovering/Resolving]

NARRATIVE: CASE EVENT DATE: 201507
